FAERS Safety Report 22999684 (Version 2)
Quarter: 2024Q1

REPORT INFORMATION
  Report Type: Report from Study
  Country: US (occurrence: US)
  Receive Date: 20230928
  Receipt Date: 20240229
  Transmission Date: 20240410
  Serious: Yes (Hospitalization)
  Sender: FDA-Public Use
  Company Number: US-ARGENX-2022-ARGX-US002133

PATIENT

DRUGS (5)
  1. VYVGART [Suspect]
     Active Substance: EFGARTIGIMOD ALFA-FCAB
     Indication: Myasthenia gravis
     Dosage: 10 MG/KG
     Route: 042
     Dates: start: 20220131
  2. VYVGART [Suspect]
     Active Substance: EFGARTIGIMOD ALFA-FCAB
     Dosage: 10 MG/KG
     Route: 042
     Dates: start: 20230418
  3. PREDNISONE [Concomitant]
     Active Substance: PREDNISONE
     Indication: Product used for unknown indication
     Dosage: 5 MG, DAILY
     Route: 065
  4. FERROUS GLUCONATE [Concomitant]
     Active Substance: FERROUS GLUCONATE
     Indication: Full blood count abnormal
     Route: 065
  5. Immunoglobulin [Concomitant]
     Indication: Product used for unknown indication
     Route: 042

REACTIONS (12)
  - Postoperative thrombosis [Recovering/Resolving]
  - Metastases to lung [Recovering/Resolving]
  - Myasthenia gravis [Unknown]
  - Malaise [Not Recovered/Not Resolved]
  - Menstruation irregular [Recovered/Resolved]
  - Heavy menstrual bleeding [Recovered/Resolved]
  - Photosensitivity reaction [Unknown]
  - Weight increased [Unknown]
  - Off label use [Unknown]
  - Asthenia [Not Recovered/Not Resolved]
  - Nasopharyngitis [Unknown]
  - COVID-19 [Unknown]
